FAERS Safety Report 10357243 (Version 1)
Quarter: 2014Q3

REPORT INFORMATION
  Report Type: Spontaneous
  Country: ES (occurrence: ES)
  Receive Date: 20140801
  Receipt Date: 20140801
  Transmission Date: 20150326
  Serious: Yes (Other)
  Sender: FDA-Public Use
  Company Number: PHHY2014ES091887

PATIENT
  Age: 28 Year
  Sex: Male

DRUGS (2)
  1. CLARITHROMYCIN. [Suspect]
     Active Substance: CLARITHROMYCIN
     Indication: PHARYNGITIS
     Dosage: 500 MG, UNK
  2. ERYTHROMYCIN. [Concomitant]
     Active Substance: ERYTHROMYCIN

REACTIONS (10)
  - Affect lability [Recovered/Resolved]
  - Erythema [Recovered/Resolved]
  - Panic disorder [Recovered/Resolved]
  - Neurotoxicity [Unknown]
  - Depersonalisation [Unknown]
  - Inappropriate affect [Unknown]
  - Anxiety [Recovered/Resolved]
  - Dizziness [Recovered/Resolved]
  - Palmar erythema [Recovered/Resolved]
  - Illusion [Recovered/Resolved]
